FAERS Safety Report 4302483-4 (Version None)
Quarter: 2004Q1

REPORT INFORMATION
  Report Type: 
  Country: None (occurrence: None)
  Receive Date: 20040220
  Receipt Date: 20040206
  Transmission Date: 20041129
  Serious: Yes (Hospitalization)
  Sender: FDA-Public Use
  Company Number: FRWYE531023JAN04

PATIENT
  Age: 86 Year
  Sex: Female

DRUGS (5)
  1. EFFEXOR [Suspect]
     Dosage: ORAL
     Route: 048
  2. CARDENSIEL (BISOPROLOL, TABLET, 0) [Suspect]
     Dosage: ORAL
     Route: 048
  3. EPREX [Suspect]
     Dosage: 5000 IU 1X PER 1WK SC
     Route: 058
     Dates: start: 20031027, end: 20031103
  4. FERROUS FUMARATE [Suspect]
     Dosage: 200 MG 1X PER 2 DAY ORAL
     Route: 048
     Dates: start: 20031027, end: 20031106
  5. SPIRONOLACTONE (SPIRINOLACTONE) [Concomitant]

REACTIONS (1)
  - DEEP VEIN THROMBOSIS [None]
